FAERS Safety Report 6465242-2 (Version None)
Quarter: 2009Q4

REPORT INFORMATION
  Report Type: 
  Country: None (occurrence: None)
  Receive Date: 20091201
  Receipt Date: 20091117
  Transmission Date: 20100525
  Serious: Yes (Hospitalization)
  Sender: FDA-Public Use
  Company Number: TR-MYLANLABS-2009S1019886

PATIENT
  Age: 28 Year
  Sex: Female

DRUGS (4)
  1. QUETIAPINE [Suspect]
     Indication: SCHIZOPHRENIA
     Dosage: 900 MG/DAY
  2. OLANZAPINE [Suspect]
     Indication: SCHIZOPHRENIA
     Dosage: 20 MG/DAY
  3. VALPROIC ACID [Suspect]
     Indication: SCHIZOPHRENIA
     Dosage: 1000 MG/DAY
  4. LITHIUM [Suspect]
     Indication: SCHIZOPHRENIA
     Dosage: 1200 MG/DAY

REACTIONS (1)
  - METABOLIC SYNDROME [None]
